FAERS Safety Report 19569592 (Version 1)
Quarter: 2021Q3

REPORT INFORMATION
  Report Type: Spontaneous
  Country: US (occurrence: US)
  Receive Date: 20210716
  Receipt Date: 20210716
  Transmission Date: 20211014
  Serious: Yes (Other)
  Sender: FDA-Public Use
  Company Number: US-BAYER-2021-175361

PATIENT
  Age: 36 Year
  Sex: Female

DRUGS (1)
  1. MIRENA [Suspect]
     Active Substance: LEVONORGESTREL
     Indication: VON WILLEBRAND^S DISEASE
     Dosage: 20?G PER DAY CONTINUOUSLY
     Route: 015
     Dates: start: 20200521, end: 20210618

REACTIONS (4)
  - Genital haemorrhage [None]
  - Device expulsion [Recovered/Resolved]
  - Device use issue [None]
  - Off label use of device [None]

NARRATIVE: CASE EVENT DATE: 20200121
